FAERS Safety Report 5709843-5 (Version None)
Quarter: 2008Q2

REPORT INFORMATION
  Report Type: 
  Country: None (occurrence: None)
  Receive Date: 20080418
  Receipt Date: 20070507
  Transmission Date: 20081010
  Serious: Yes (Other)
  Sender: FDA-Public Use
  Company Number: US-ASTRAZENECA-2007UW05279

PATIENT
  Age: 66 Year
  Sex: Male
  Weight: 104.3 kg

DRUGS (7)
  1. TOPROL-XL [Suspect]
     Indication: HYPERTENSION
     Route: 048
     Dates: start: 20041001
  2. TOPROL-XL [Suspect]
     Route: 048
  3. SIMVASTATIN [Concomitant]
  4. PRECOS [Concomitant]
  5. GLUSOSIDE [Concomitant]
  6. ZESTORETIC [Concomitant]
     Indication: BLOOD PRESSURE INCREASED
  7. JANUVIA [Concomitant]

REACTIONS (1)
  - TYPE 2 DIABETES MELLITUS [None]
